FAERS Safety Report 4656384-2 (Version None)
Quarter: 2005Q2

REPORT INFORMATION
  Report Type: 
  Country: None (occurrence: None)
  Receive Date: 20050509
  Receipt Date: 20050224
  Transmission Date: 20051028
  Serious: Yes (Death, Hospitalization)
  Sender: FDA-Public Use
  Company Number: US-MERCK-0502USA03473

PATIENT
  Age: 65 Year
  Sex: Male

DRUGS (11)
  1. VIOXX [Suspect]
     Indication: BACK PAIN
     Route: 048
     Dates: start: 19990101, end: 20030216
  2. VIOXX [Suspect]
     Indication: PAIN IN EXTREMITY
     Route: 048
     Dates: start: 19990101, end: 20030216
  3. ATENOLOL [Concomitant]
     Route: 065
     Dates: start: 19990501, end: 20000601
  4. AMBIEN [Concomitant]
     Route: 065
  5. PRINIVIL [Concomitant]
     Route: 065
  6. CLONAZEPAM [Concomitant]
     Route: 065
  7. COUMADIN [Concomitant]
     Route: 065
     Dates: start: 19990601, end: 20030201
  8. ZOCOR [Concomitant]
     Route: 065
  9. NEURONTIN [Concomitant]
     Route: 065
     Dates: start: 19991101, end: 20000501
  10. ASPIRIN [Concomitant]
     Route: 065
     Dates: start: 20001201, end: 20030201
  11. PAXIL [Concomitant]
     Route: 065
     Dates: start: 20001201, end: 20030201

REACTIONS (7)
  - CARDIAC DISORDER [None]
  - CEREBROVASCULAR ACCIDENT [None]
  - DEATH [None]
  - DEPRESSION [None]
  - EMOTIONAL DISTRESS [None]
  - LEG AMPUTATION [None]
  - POOR PERIPHERAL CIRCULATION [None]
